FAERS Safety Report 10933147 (Version 1)
Quarter: 2015Q1

REPORT INFORMATION
  Report Type: Spontaneous
  Country: US (occurrence: US)
  Receive Date: 20150320
  Receipt Date: 20150320
  Transmission Date: 20150721
  Serious: Yes (Other)
  Sender: FDA-Public Use
  Company Number: US-ASTRAZENECA-2015SE23732

PATIENT

DRUGS (2)
  1. INTEGRILIN [Concomitant]
     Active Substance: EPTIFIBATIDE
  2. BRILINTA [Suspect]
     Active Substance: TICAGRELOR
     Dosage: UNKNOWN
     Route: 048

REACTIONS (1)
  - Haemorrhage intracranial [Unknown]
